FAERS Safety Report 13603990 (Version 1)
Quarter: 2017Q2

REPORT INFORMATION
  Report Type: Spontaneous
  Country: US (occurrence: US)
  Receive Date: 20170601
  Receipt Date: 20170601
  Transmission Date: 20170830
  Serious: Yes (Life-Threatening, Disabling, Other)
  Sender: FDA-Public Use
  Company Number: None

PATIENT
  Age: 55 Year
  Sex: Female
  Weight: 85.5 kg

DRUGS (9)
  1. CPAPTALK [Concomitant]
  2. MULTI VITAMIN [Concomitant]
     Active Substance: VITAMINS
  3. WELLBUTRIN [Concomitant]
     Active Substance: BUPROPION HYDROCHLORIDE
  4. FISH OIL [Concomitant]
     Active Substance: FISH OIL
  5. BUSPIRONE [Concomitant]
     Active Substance: BUSPIRONE HYDROCHLORIDE
  6. VIT B [Concomitant]
     Active Substance: VITAMIN B
  7. DULOXETIN [Suspect]
     Active Substance: DULOXETINE
     Indication: MAJOR DEPRESSION
     Dosage: ?          QUANTITY:1 CAPSULE(S);?
     Route: 048
  8. VITAMIN D [Concomitant]
     Active Substance: CHOLECALCIFEROL
  9. MAGNESIUM [Concomitant]
     Active Substance: MAGNESIUM

REACTIONS (14)
  - Vomiting [None]
  - Blood glucose abnormal [None]
  - Hypopnoea [None]
  - Weight increased [None]
  - Fear [None]
  - Apnoea [None]
  - Hypersomnia [None]
  - Anxiety [None]
  - General physical health deterioration [None]
  - Feeling abnormal [None]
  - Migraine [None]
  - Nausea [None]
  - Gastrooesophageal reflux disease [None]
  - Suicidal ideation [None]

NARRATIVE: CASE EVENT DATE: 20071115
